FAERS Safety Report 5582604-6 (Version None)
Quarter: 2008Q1

REPORT INFORMATION
  Report Type: 
  Country: None (occurrence: None)
  Receive Date: 20080107
  Receipt Date: 20071108
  Transmission Date: 20080703
  Serious: No
  Sender: FDA-Public Use
  Company Number: US-BAYER-US-2007-043002

PATIENT
  Age: 17 Year
  Sex: Female
  Weight: 64 kg

DRUGS (2)
  1. YASMIN [Suspect]
     Indication: MENORRHAGIA
     Route: 048
     Dates: start: 20070301, end: 20071001
  2. ADVAIR DISKUS 100/50 [Concomitant]
     Indication: DRUG USE FOR UNKNOWN INDICATION

REACTIONS (1)
  - ALOPECIA [None]
